FAERS Safety Report 20757887 (Version 1)
Quarter: 2022Q2

REPORT INFORMATION
  Report Type: Spontaneous
  Country: US (occurrence: None)
  Receive Date: 20220427
  Receipt Date: 20220427
  Transmission Date: 20220720
  Serious: Yes (Hospitalization)
  Sender: FDA-Public Use
  Company Number: None

PATIENT
  Age: 69 Year
  Sex: Male

DRUGS (5)
  1. TACROLIMUS [Suspect]
     Active Substance: TACROLIMUS
     Indication: Heart transplant
     Dosage: FREQUENCY : TWICE A DAY;?
     Route: 048
  2. MYCOPHENOLATE MOFETIL [Suspect]
     Active Substance: MYCOPHENOLATE MOFETIL
     Indication: Heart transplant
     Dosage: FREQUENCY : DAILY;?
     Route: 048
  3. calcium-vitamin D 500-200mg [Concomitant]
     Dates: start: 20191227
  4. centrum multivitamin [Concomitant]
     Dates: start: 20200208
  5. MAGNESIUM OXIDE 400MG [Concomitant]
     Active Substance: MAGNESIUM OXIDE
     Dates: start: 20191227

REACTIONS (2)
  - Parainfluenzae virus infection [None]
  - Respirovirus test positive [None]

NARRATIVE: CASE EVENT DATE: 20220426
